FAERS Safety Report 9826146 (Version 1)
Quarter: 2013Q4

REPORT INFORMATION
  Report Type: Spontaneous
  Country: US (occurrence: None)
  Receive Date: 20131104
  Receipt Date: 20131104
  Transmission Date: 20140711
  Serious: Yes (Other)
  Sender: FDA-Public Use
  Company Number: 1000047470

PATIENT
  Age: 76 Year
  Sex: Female

DRUGS (2)
  1. DALIRESP [Suspect]
     Indication: CHRONIC OBSTRUCTIVE PULMONARY DISEASE
     Dosage: 500 MCG, (500 MCG, 1 IN 1 D), ORAL
     Route: 048
     Dates: start: 20130717
  2. VESICARE (SOLIFENACIN SUCCINATE) SOLIFENACIN SUCCINATE) [Concomitant]

REACTIONS (4)
  - Tremor [None]
  - Muscular weakness [None]
  - Nausea [None]
  - Influenza like illness [None]
